FAERS Safety Report 14952939 (Version 3)
Quarter: 2018Q2

REPORT INFORMATION
  Report Type: Spontaneous
  Country: CZ (occurrence: CZ)
  Receive Date: 20180530
  Receipt Date: 20180619
  Transmission Date: 20180711
  Serious: Yes (Other)
  Sender: FDA-Public Use
  Company Number: CZ-ROCHE-2131437

PATIENT
  Age: 64 Year
  Sex: Male

DRUGS (6)
  1. CAPECITABINE. [Suspect]
     Active Substance: CAPECITABINE
     Indication: COLON CANCER METASTATIC
     Dosage: PART OF XELIRI REGIMEN
     Route: 065
     Dates: start: 201304, end: 201309
  2. FOLINIC ACID [Suspect]
     Active Substance: LEUCOVORIN
     Indication: COLON CANCER METASTATIC
     Dosage: PART OF FOLFIRI REGIMEN
     Route: 042
     Dates: start: 201406
  3. BEVACIZUMAB. [Suspect]
     Active Substance: BEVACIZUMAB
     Indication: COLORECTAL CANCER
     Route: 065
     Dates: start: 201406
  4. CAPECITABINE. [Suspect]
     Active Substance: CAPECITABINE
     Dosage: PART OF XELIRI REGIMEN?LAST RECEIVED: 2015
     Route: 065
     Dates: start: 2014
  5. FLUOROURACIL. [Suspect]
     Active Substance: FLUOROURACIL
     Indication: COLON CANCER METASTATIC
     Route: 065
     Dates: start: 201406
  6. IRINOTECAN [Suspect]
     Active Substance: IRINOTECAN
     Indication: COLON CANCER METASTATIC
     Dosage: PART OF FOLFIRI REGIMEN?LAST RECEIVED: 2015
     Route: 042
     Dates: start: 201406

REACTIONS (7)
  - Stomatitis [Unknown]
  - Diarrhoea [Unknown]
  - Anaemia [Unknown]
  - Device related thrombosis [Recovered/Resolved]
  - Thrombocytopenia [Unknown]
  - Paraesthesia [Unknown]
  - Palmar-plantar erythrodysaesthesia syndrome [Recovered/Resolved]

NARRATIVE: CASE EVENT DATE: 2014
